FAERS Safety Report 4840387-9 (Version None)
Quarter: 2005Q4

REPORT INFORMATION
  Report Type: 
  Country: None (occurrence: None)
  Receive Date: 20051019
  Receipt Date: 20050325
  Transmission Date: 20060501
  Serious: Yes (Other)
  Sender: FDA-Public Use
  Company Number: DSA_70620_2005

PATIENT
  Age: 30 Year
  Sex: Male

DRUGS (3)
  1. DARVOCET-N 100 [Suspect]
     Dosage: DF ONCE
     Dates: start: 20041220, end: 20041220
  2. EXTRA STRENGTH TYLENOL [Suspect]
     Dosage: 4000 MG ONCE
     Dates: start: 20041220, end: 20041220
  3. ADVIL [Concomitant]

REACTIONS (1)
  - INTENTIONAL DRUG MISUSE [None]
